FAERS Safety Report 14898283 (Version 2)
Quarter: 2018Q2

REPORT INFORMATION
  Report Type: Spontaneous
  Country: US (occurrence: US)
  Receive Date: 20180515
  Receipt Date: 20180517
  Transmission Date: 20180711
  Serious: No
  Sender: FDA-Public Use
  Company Number: US-SA-2018SA019666

PATIENT
  Age: 66 Year
  Sex: Female

DRUGS (2)
  1. TOUJEO [Suspect]
     Active Substance: INSULIN GLARGINE
     Indication: TYPE 2 DIABETES MELLITUS
     Dosage: DOSE:27 UNIT(S)
     Route: 051
     Dates: start: 201704
  2. SOLOSTAR [Suspect]
     Active Substance: DEVICE
     Dates: start: 201704

REACTIONS (6)
  - Hypersomnia [Unknown]
  - Hypoaesthesia [Unknown]
  - Somnolence [Unknown]
  - Fatigue [Unknown]
  - Paraesthesia [Unknown]
  - Musculoskeletal disorder [Unknown]

NARRATIVE: CASE EVENT DATE: 2017
